FAERS Safety Report 10133503 (Version 4)
Quarter: 2014Q3

REPORT INFORMATION
  Report Type: Spontaneous
  Country: CH (occurrence: CH)
  Receive Date: 20140428
  Receipt Date: 20140904
  Transmission Date: 20150326
  Serious: Yes (Hospitalization, Other)
  Sender: FDA-Public Use
  Company Number: PHHY2014CH050239

PATIENT
  Sex: Male

DRUGS (7)
  1. RITALIN [Suspect]
     Active Substance: METHYLPHENIDATE HYDROCHLORIDE
     Indication: OFF LABEL USE
     Dosage: 10 MG, BID
     Route: 048
     Dates: start: 2013
  2. VALIUM [Concomitant]
     Active Substance: DIAZEPAM
     Dosage: UNK UKN, UNK
  3. RITALIN [Suspect]
     Active Substance: METHYLPHENIDATE HYDROCHLORIDE
     Dosage: UNK UKN, UNK (DOSE CHANGED)
  4. PACEUM [Concomitant]
     Dosage: UNK UKN, UNK
  5. RITALIN LA [Suspect]
     Active Substance: METHYLPHENIDATE HYDROCHLORIDE
     Dosage: 30 MG, IN THE MORNING DAILY
     Route: 048
     Dates: start: 2013
  6. RISPERDAL [Concomitant]
     Active Substance: RISPERIDONE
     Dosage: 3 MG, BID (1 IN MORNING AND 1 IN NIGHT)
  7. CLOPIN [Concomitant]
     Active Substance: CLOPIDOGREL BISULFATE
     Dosage: 150 MG, UNK

REACTIONS (8)
  - Abnormal behaviour [Recovered/Resolved]
  - Malaise [Not Recovered/Not Resolved]
  - Sleep disorder [Not Recovered/Not Resolved]
  - Burning sensation mucosal [Recovered/Resolved]
  - Wrong technique in drug usage process [Unknown]
  - Alcohol problem [Not Recovered/Not Resolved]
  - Tremor [Not Recovered/Not Resolved]
  - Psychotic disorder [Not Recovered/Not Resolved]
